FAERS Safety Report 21864712 (Version 2)
Quarter: 2023Q1

REPORT INFORMATION
  Report Type: Spontaneous
  Country: US (occurrence: US)
  Receive Date: 20230116
  Receipt Date: 20230203
  Transmission Date: 20230417
  Serious: No
  Sender: FDA-Public Use
  Company Number: US-drreddys-SPO/USA/22/0158943

PATIENT
  Age: 72 Year
  Sex: Female

DRUGS (9)
  1. LENALIDOMIDE [Suspect]
     Active Substance: LENALIDOMIDE
     Indication: Plasma cell myeloma
     Dosage: TAKE 1 CAPSULE BY MOUTH DAILY ON DAYS 1-21 AND 7 DAYS OFF
     Route: 048
     Dates: start: 20221025
  2. LENALIDOMIDE [Suspect]
     Active Substance: LENALIDOMIDE
  3. DEXAMETHASONE SODIUM PHOSPHATE [Concomitant]
     Active Substance: DEXAMETHASONE SODIUM PHOSPHATE
     Indication: Product used for unknown indication
  4. IMODIUM A-D TAB 2MG [Concomitant]
     Indication: Product used for unknown indication
  5. FLONASE ALLE SUS 50MCG/AC [Concomitant]
     Indication: Product used for unknown indication
  6. LORATADINE TAB 10MG [Concomitant]
     Indication: Product used for unknown indication
  7. VELCADE SOL 3.5MG [Concomitant]
     Indication: Product used for unknown indication
  8. ACYCLOVIR [Concomitant]
     Active Substance: ACYCLOVIR
     Indication: Product used for unknown indication
  9. ASPIRIN TAB 325MG [Concomitant]
     Indication: Product used for unknown indication

REACTIONS (2)
  - Rhinorrhoea [Recovered/Resolved]
  - Diarrhoea [Not Recovered/Not Resolved]
